FAERS Safety Report 6100757-8 (Version None)
Quarter: 2009Q1

REPORT INFORMATION
  Report Type: 
  Country: None (occurrence: None)
  Receive Date: 20090303
  Receipt Date: 20090223
  Transmission Date: 20090719
  Serious: Yes (Other)
  Sender: FDA-Public Use
  Company Number: TR-ROXANE LABORATORIES, INC.-2009-RO-00183RO

PATIENT
  Age: 24 Year
  Sex: Female

DRUGS (7)
  1. CYCLOPHOSPHAMIDE [Suspect]
     Indication: SYSTEMIC LUPUS ERYTHEMATOSUS
     Dates: start: 19971201
  2. AZATHIOPRINE [Suspect]
     Indication: SYSTEMIC LUPUS ERYTHEMATOSUS
     Dosage: 100MG
     Dates: start: 19950101
  3. HYDROXYCHLOROQUINE SULFATE [Suspect]
     Indication: SYSTEMIC LUPUS ERYTHEMATOSUS
     Dosage: 400MG
     Dates: start: 19950101
  4. HYDROXYCHLOROQUINE SULFATE [Suspect]
     Dates: start: 19971201
  5. PREDNISOLONE [Suspect]
     Indication: SYSTEMIC LUPUS ERYTHEMATOSUS
     Dates: start: 19950101
  6. METHYLPREDNISOLONE 4MG TAB [Suspect]
     Indication: SYSTEMIC LUPUS ERYTHEMATOSUS
  7. ANTIBIOTICS [Suspect]
     Indication: URINARY TRACT INFECTION BACTERIAL

REACTIONS (3)
  - BONE SARCOMA [None]
  - SYSTEMIC LUPUS ERYTHEMATOSUS [None]
  - URINARY TRACT INFECTION BACTERIAL [None]
